FAERS Safety Report 15429575 (Version 1)
Quarter: 2018Q3

REPORT INFORMATION
  Report Type: Report from Study
  Country: DE (occurrence: DE)
  Receive Date: 20180926
  Receipt Date: 20180926
  Transmission Date: 20181010
  Serious: Yes (Hospitalization)
  Sender: FDA-Public Use
  Company Number: DE-PFIZER INC-2018384163

PATIENT
  Age: 50 Year
  Sex: Male
  Weight: 87 kg

DRUGS (21)
  1. OXALIPLATIN. [Suspect]
     Active Substance: OXALIPLATIN
     Dosage: DAILY DOSE: 262.6 MG MILLGRAM(S) EVERY 3 WEEKS
     Route: 042
     Dates: start: 20160322, end: 20160322
  2. AVASTIN [Suspect]
     Active Substance: BEVACIZUMAB
     Indication: COLORECTAL CANCER
     Dosage: 645 MG, EVERY 3 WEEKS, LAST MOST RECENT DOSE PRIOR TO SAE WAS ON : 22/MAR/2016
     Route: 042
     Dates: start: 20160209, end: 20160209
  3. OXALIPLATIN. [Suspect]
     Active Substance: OXALIPLATIN
     Indication: COLORECTAL CANCER
     Dosage: DAILY DOSE: 262.6 MG MILLGRAM(S) EVERY 3 WEEKS
     Route: 042
     Dates: start: 20160209
  4. OXALIPLATIN. [Suspect]
     Active Substance: OXALIPLATIN
     Dosage: DAILY DOSE: 262.6 MG MILLGRAM(S) EVERY 3 WEEKS
     Route: 042
     Dates: start: 20160301, end: 20160301
  5. CAPECITABINE. [Concomitant]
     Active Substance: CAPECITABINE
     Dosage: 49000 MG, UNK
     Route: 048
     Dates: start: 20160412
  6. OXALIPLATIN. [Suspect]
     Active Substance: OXALIPLATIN
     Dosage: DAILY DOSE: 262.6 MG MILLGRAM(S) EVERY 3 WEEKS
     Route: 042
     Dates: start: 20160209
  7. XELODA [Suspect]
     Active Substance: CAPECITABINE
     Dosage: 6000 MG, UNK
     Route: 048
     Dates: start: 20160613, end: 20160615
  8. OXALIPLATIN. [Suspect]
     Active Substance: OXALIPLATIN
     Dosage: UNK
     Route: 042
     Dates: start: 20160613
  9. OXALIPLATIN. [Suspect]
     Active Substance: OXALIPLATIN
     Dosage: DAILY DOSE: 210.08 MG MILLGRAM(S) EVERY 3 WEEKS
     Route: 042
     Dates: start: 20160412
  10. AVASTIN [Suspect]
     Active Substance: BEVACIZUMAB
     Dosage: 742.5 MG, EVERY 3 WEEKS, DAILY DOSE: 742.5 MG MILLGRAM(S) EVERY 3 WEEKS
     Route: 042
     Dates: start: 20160818, end: 20160818
  11. XELODA [Suspect]
     Active Substance: CAPECITABINE
     Indication: COLORECTAL CANCER
     Dosage: 54000 MG, PER DAY FOR 14 DAYS FOLLOWED BY A BREAK OF 7 DAYS.
     Route: 048
     Dates: start: 20160209, end: 20160223
  12. XELODA [Suspect]
     Active Substance: CAPECITABINE
     Dosage: 56000 MG, UNK
     Route: 048
     Dates: start: 20160301, end: 20160314
  13. XELODA [Suspect]
     Active Substance: CAPECITABINE
     Dosage: 4000 MG, D1?14 FOLLOWED BY 7D PAUSE
     Route: 048
     Dates: start: 20160523, end: 20160526
  14. CAPECITABINE. [Concomitant]
     Active Substance: CAPECITABINE
     Indication: COLORECTAL CANCER
     Dosage: 54000 MG (1 DF)  PER DAY FOR 14 DAYS FOLLOWED BY A BREAK OF 7 DAYS.
     Route: 048
     Dates: start: 20160209, end: 20160223
  15. OXALIPLATIN. [Suspect]
     Active Substance: OXALIPLATIN
     Dosage: DAILY DOSE: 135.2 MG MILLGRAM(S) EVERY 3 WEEKS
     Route: 042
     Dates: start: 20160523
  16. XELODA [Suspect]
     Active Substance: CAPECITABINE
     Dosage: 49000 MG, UNK
     Route: 048
     Dates: start: 20160412, end: 20160425
  17. XELODA [Suspect]
     Active Substance: CAPECITABINE
     Dosage: 56000 MG, UNK
     Route: 048
     Dates: start: 20160322
  18. CAPECITABINE. [Concomitant]
     Active Substance: CAPECITABINE
     Dosage: 56000 MG (1 DF)
     Route: 048
     Dates: start: 20160301, end: 20160314
  19. AVASTIN [Suspect]
     Active Substance: BEVACIZUMAB
     Dosage: UNK
     Route: 042
     Dates: start: 20160412
  20. CAPECITABINE. [Concomitant]
     Active Substance: CAPECITABINE
     Dosage: 56000 MG, UNK
     Route: 048
     Dates: start: 20160322, end: 20160404
  21. TILIDIN [Concomitant]
     Active Substance: NALOXONE HYDROCHLORIDE\TILIDINE HYDROCHLORIDE

REACTIONS (8)
  - Dyspnoea exertional [Recovered/Resolved]
  - Stoma site haemorrhage [Recovered/Resolved]
  - Fatigue [Recovered/Resolved]
  - Myalgia [Recovered/Resolved]
  - Myalgia [Recovered/Resolved]
  - Anaemia [Not Recovered/Not Resolved]
  - Nausea [Recovered/Resolved]
  - Stoma site haemorrhage [Not Recovered/Not Resolved]

NARRATIVE: CASE EVENT DATE: 20160210
